FAERS Safety Report 15641660 (Version 1)
Quarter: 2018Q4

REPORT INFORMATION
  Report Type: Report from Study
  Country: BR (occurrence: BR)
  Receive Date: 20181121
  Receipt Date: 20181121
  Transmission Date: 20190205
  Serious: Yes (Other)
  Sender: FDA-Public Use
  Company Number: PHHY2018BR158973

PATIENT
  Sex: Female
  Weight: 53 kg

DRUGS (2)
  1. GLAUCOTRAT [Concomitant]
     Active Substance: TIMOLOL MALEATE
     Indication: HYPERTENSION
     Dosage: 1 GTT ONE DROP IN EACH EYE, BID
     Route: 065
  2. VITALUX PLUS OMEGA 03 (ALC) [Suspect]
     Active Substance: MINERALS\OMEGA-3 FATTY ACIDS\VITAMINS
     Indication: GLAUCOMA
     Dosage: UNK UNK, BID
     Route: 048

REACTIONS (7)
  - Visual field defect [Unknown]
  - Fatigue [Unknown]
  - Weight decreased [Unknown]
  - Anxiety [Unknown]
  - Visual impairment [Recovered/Resolved with Sequelae]
  - Cachexia [Unknown]
  - Vein disorder [Unknown]
